FAERS Safety Report 9128216 (Version 1)
Quarter: 2013Q1

REPORT INFORMATION
  Report Type: Spontaneous
  Country: US (occurrence: US)
  Receive Date: 20130125
  Receipt Date: 20130125
  Transmission Date: 20140127
  Serious: Yes (Hospitalization, Other)
  Sender: FDA-Public Use
  Company Number: PHEH2012US024790

PATIENT
  Sex: Female
  Weight: 73.2 kg

DRUGS (20)
  1. GLEEVEC [Suspect]
     Indication: CHRONIC MYELOID LEUKAEMIA
     Dosage: 400 MG, QD
     Route: 048
     Dates: start: 20121204
  2. GLEEVEC [Suspect]
     Dosage: 400 MG, DAILY
     Route: 048
     Dates: start: 20121218
  3. GLEEVEC [Suspect]
     Dosage: 400 MG, DAILY
     Route: 048
     Dates: start: 20121204, end: 20121228
  4. AXID [Concomitant]
     Dosage: 150 MG, BID
  5. CALCIUM + VITAMIN D [Concomitant]
  6. CARAFATE [Concomitant]
     Dosage: 4 TIMES A DAY
  7. CRESTOR [Concomitant]
     Dosage: 10 MG, QD
  8. DIOVAN [Concomitant]
     Dosage: 160 MG, BID
  9. DURAGESIC [Concomitant]
     Dosage: 12 UG, EVERY 72 HOURS
  10. GABAPENTIN [Concomitant]
     Dosage: 300 MG, DAILY
  11. GLIPIZIDE [Concomitant]
     Dosage: 10 MG, BID
  12. JANUMET [Concomitant]
     Dosage: 50/500, 1 PILL DAILY
  13. KENALOG [Concomitant]
     Indication: SKIN DISCOMFORT
  14. KLOR-CON [Concomitant]
     Dosage: 20 MEQ, BID
  15. LORTAB [Concomitant]
     Indication: PAIN
     Dosage: 1 OR 2 PILLS EVERY 4 HOURS PRN
  16. LOVAZA [Concomitant]
     Dosage: 1 G, 4 TIMES A DAY
  17. NORVASC [Concomitant]
     Dosage: 2.5 MG, QD
  18. PREMARIN [Concomitant]
     Dosage: 0.625 MG, QD
  19. SYMBYAX [Concomitant]
  20. TYLENOL [Concomitant]
     Indication: PAIN

REACTIONS (16)
  - Gastroenteritis [Unknown]
  - Gastrooesophageal reflux disease [Unknown]
  - Diarrhoea [Recovering/Resolving]
  - Abdominal distension [Recovering/Resolving]
  - Pain [Unknown]
  - Adrenal adenoma [Unknown]
  - Hepatic steatosis [Unknown]
  - Diabetes mellitus [Unknown]
  - Splenic granuloma [Unknown]
  - Hyperlipidaemia [Unknown]
  - Hypertension [Unknown]
  - Diverticulitis [Unknown]
  - Drug intolerance [Unknown]
  - Body temperature increased [Unknown]
  - Blood pressure increased [Unknown]
  - Malaise [Unknown]
